FAERS Safety Report 9863810 (Version 2)
Quarter: 2014Q1

REPORT INFORMATION
  Report Type: Spontaneous
  Country: US (occurrence: US)
  Receive Date: 20140203
  Receipt Date: 20140327
  Transmission Date: 20141002
  Serious: Yes (Death, Hospitalization)
  Sender: FDA-Public Use
  Company Number: US-GLAXOSMITHKLINE-A1032939A

PATIENT
  Age: 59 Year
  Sex: Male

DRUGS (1)
  1. AVANDIA [Suspect]
     Indication: TYPE 2 DIABETES MELLITUS
     Dosage: 8U PER DAY
     Route: 048
     Dates: start: 200908, end: 201103

REACTIONS (6)
  - Cardiac failure congestive [Fatal]
  - Coronary artery disease [Unknown]
  - Catheterisation cardiac [Unknown]
  - Cardiomegaly [Unknown]
  - Respiratory failure [Unknown]
  - Stent placement [Unknown]
